FAERS Safety Report 5905909-5 (Version None)
Quarter: 2008Q4

REPORT INFORMATION
  Report Type: 
  Country: None (occurrence: None)
  Receive Date: 20081001
  Receipt Date: 20081001
  Transmission Date: 20090506
  Serious: Yes (Life-Threatening)
  Sender: FDA-Public Use
  Company Number: None

PATIENT
  Sex: Female
  Weight: 74.8435 kg

DRUGS (3)
  1. HYZAAR [Suspect]
     Indication: HYPERTENSION
     Dosage: 1 TABLET DAILY PO
     Route: 048
  2. RANITIDINE [Suspect]
     Indication: GASTROOESOPHAGEAL REFLUX DISEASE
     Dosage: 1 TABLET DAILY PO
     Route: 048
     Dates: start: 20080910, end: 20080922
  3. RANITIDINE [Suspect]
     Indication: HYPERSENSITIVITY
     Dosage: 1 TABLET DAILY PO
     Route: 048
     Dates: start: 20080910, end: 20080922

REACTIONS (5)
  - CHOKING [None]
  - DYSKINESIA [None]
  - DYSPNOEA [None]
  - RASH MACULAR [None]
  - WHEEZING [None]
